FAERS Safety Report 7491205-4 (Version None)
Quarter: 2011Q2

REPORT INFORMATION
  Report Type: 
  Country: None (occurrence: None)
  Receive Date: 20110518
  Receipt Date: 20110505
  Transmission Date: 20111010
  Serious: Yes (Other)
  Sender: FDA-Public Use
  Company Number: JPI-P-014940

PATIENT
  Age: 78 Year
  Sex: Female
  Weight: 96.1626 kg

DRUGS (2)
  1. XYREM [Suspect]
     Indication: SOMNOLENCE
     Dosage: 2 IN 1 D, ORAL 6 GM (3 GM, 2 IN 1 D), ORAL
     Route: 048
     Dates: start: 20020901
  2. XYREM [Suspect]
     Indication: NARCOLEPSY
     Dosage: 2 IN 1 D, ORAL 6 GM (3 GM, 2 IN 1 D), ORAL
     Route: 048
     Dates: start: 20020901

REACTIONS (3)
  - GAIT DISTURBANCE [None]
  - UPPER LIMB FRACTURE [None]
  - DRUG INEFFECTIVE [None]
